FAERS Safety Report 12192467 (Version 1)
Quarter: 2016Q1

REPORT INFORMATION
  Report Type: Spontaneous
  Country: US (occurrence: US)
  Receive Date: 20160318
  Receipt Date: 20160318
  Transmission Date: 20160526
  Serious: No
  Sender: FDA-Public Use
  Company Number: US-OSMOTICA_PHARMACEUTICAL_CORP-POI0573201500053

PATIENT
  Age: 76 Year
  Sex: Female
  Weight: 55.84 kg

DRUGS (4)
  1. OXYBUTYNIN CHLORIDE EXTENDED RELEASE [Suspect]
     Active Substance: OXYBUTYNIN CHLORIDE
     Indication: HYPERTONIC BLADDER
     Dates: start: 201506, end: 20150727
  2. ZOLOFT [Concomitant]
     Active Substance: SERTRALINE HYDROCHLORIDE
     Indication: DEPRESSION
  3. VITAMIN D [Concomitant]
     Active Substance: CHOLECALCIFEROL
  4. CRESTOR [Concomitant]
     Active Substance: ROSUVASTATIN CALCIUM
     Indication: HYPERCHOLESTEROLAEMIA

REACTIONS (3)
  - Pruritus [Recovered/Resolved]
  - Rash generalised [Recovered/Resolved]
  - Flushing [Recovered/Resolved]

NARRATIVE: CASE EVENT DATE: 20150725
